FAERS Safety Report 9011758 (Version 1)
Quarter: 2013Q1

REPORT INFORMATION
  Report Type: Spontaneous
  Country: US (occurrence: US)
  Receive Date: 20130113
  Receipt Date: 20130113
  Transmission Date: 20140127
  Serious: Yes (Other)
  Sender: FDA-Public Use
  Company Number: US-009507513-0909USA03224

PATIENT
  Age: 13 Year
  Sex: Male
  Weight: 79.83 kg

DRUGS (3)
  1. SINGULAIR [Suspect]
     Indication: MULTIPLE ALLERGIES
     Dosage: 1 TABLET AT NIGHT
     Route: 048
     Dates: start: 20081202, end: 20090112
  2. RHINOCORT (BECLOMETHASONE DIPROPIONATE) [Concomitant]
  3. ZYRTEC [Concomitant]

REACTIONS (31)
  - Abnormal behaviour [Unknown]
  - Abdominal pain upper [Unknown]
  - Aggression [Unknown]
  - Agitation [Unknown]
  - Anger [Unknown]
  - Choking [Unknown]
  - Choking sensation [Unknown]
  - Crying [Unknown]
  - Decreased appetite [Unknown]
  - Disturbance in attention [Unknown]
  - Dizziness [Unknown]
  - Dyspepsia [Unknown]
  - Dyspnoea [Unknown]
  - Emotional disorder [Unknown]
  - Feeling abnormal [Unknown]
  - Gastric pH decreased [Unknown]
  - Headache [Unknown]
  - Hyperhidrosis [Unknown]
  - Hypoaesthesia [Unknown]
  - Hypophagia [Unknown]
  - Irritability [Unknown]
  - Mood altered [Unknown]
  - Morbid thoughts [Unknown]
  - Myalgia [Unknown]
  - Obsessive thoughts [Unknown]
  - Panic attack [Unknown]
  - Presyncope [Unknown]
  - Sensory disturbance [Unknown]
  - Tremor [Unknown]
  - Violence-related symptom [Unknown]
  - Homicidal ideation [Unknown]
